FAERS Safety Report 7584058 (Version 3)
Quarter: 2016Q2

REPORT INFORMATION
  Report Type: Report from Study
  Country: CO (occurrence: CO)
  Receive Date: 20100914
  Receipt Date: 20160427
  Transmission Date: 20160815
  Serious: Yes (Hospitalization)
  Sender: FDA-Public Use
  Company Number: PHHO2010CO12292

PATIENT
  Age: 64 Year
  Sex: Male

DRUGS (5)
  1. ALISKIREN [Suspect]
     Active Substance: ALISKIREN
     Indication: CARDIAC FAILURE
     Dosage: 300 MG, UNK
     Route: 048
     Dates: start: 20100303, end: 20100810
  2. CANDESARTAN [Concomitant]
     Active Substance: CANDESARTAN
     Indication: CARDIAC FAILURE
     Route: 065
  3. DOBUTAMINE [Concomitant]
     Active Substance: DOBUTAMINE\DOBUTAMINE HYDROCHLORIDE
     Indication: CARDIAC FAILURE
     Route: 065
  4. ACETYLCYSTEINE. [Concomitant]
     Active Substance: ACETYLCYSTEINE
     Indication: PRODUCT USED FOR UNKNOWN INDICATION
     Route: 065
  5. ALISKIREN [Suspect]
     Active Substance: ALISKIREN
     Dosage: 300 MG, UNK
     Route: 048
     Dates: start: 20100813

REACTIONS (3)
  - Angina unstable [Recovering/Resolving]
  - Ejection fraction [Recovering/Resolving]
  - Disease progression [Recovering/Resolving]

NARRATIVE: CASE EVENT DATE: 20100809
